FAERS Safety Report 4746109-4 (Version None)
Quarter: 2005Q3

REPORT INFORMATION
  Report Type: 
  Country: None (occurrence: None)
  Receive Date: 20050816
  Receipt Date: 20020301
  Transmission Date: 20060218
  Serious: Yes (Congenital Anomaly, Other)
  Sender: FDA-Public Use
  Company Number: US-BRISTOL-MYERS SQUIBB COMPANY-13032883

PATIENT

DRUGS (3)
  1. SUSTIVA [Suspect]
     Route: 064
  2. ZERIT [Suspect]
     Route: 064
  3. ZIDOVUDINE [Suspect]
     Route: 064

REACTIONS (2)
  - CONGENITAL ANOMALY [None]
  - PREGNANCY [None]
